FAERS Safety Report 16079777 (Version 4)
Quarter: 2020Q4

REPORT INFORMATION
  Report Type: Spontaneous
  Country: US (occurrence: US)
  Receive Date: 20190315
  Receipt Date: 20201013
  Transmission Date: 20210113
  Serious: Yes (Other)
  Sender: FDA-Public Use
  Company Number: US-ASTRAZENECA-2018SF33847

PATIENT
  Age: 17643 Day
  Sex: Female

DRUGS (29)
  1. PROTONIX [Suspect]
     Active Substance: PANTOPRAZOLE SODIUM
     Route: 065
     Dates: start: 2003
  2. ASPIRIN. [Concomitant]
     Active Substance: ASPIRIN
     Dates: start: 20131112
  3. PRILOSEC OTC [Suspect]
     Active Substance: OMEPRAZOLE MAGNESIUM
     Route: 048
     Dates: start: 2003
  4. HUMALOG [Concomitant]
     Active Substance: INSULIN LISPRO
     Dates: start: 20131112
  5. TYLENOL [Concomitant]
     Active Substance: ACETAMINOPHEN
     Dates: start: 20131112
  6. PAROXETINE. [Concomitant]
     Active Substance: PAROXETINE
     Dates: start: 20131112
  7. METOPROLOL XL [Concomitant]
     Active Substance: METOPROLOL SUCCINATE
     Dates: start: 20131112
  8. LISINOPRIL. [Concomitant]
     Active Substance: LISINOPRIL
     Dates: start: 20131112
  9. CLOBETASOL [Concomitant]
     Active Substance: CLOBETASOL
     Dates: start: 20110714
  10. NEXIUM 24HR [Suspect]
     Active Substance: ESOMEPRAZOLE MAGNESIUM
     Indication: GASTROOESOPHAGEAL REFLUX DISEASE
     Route: 048
     Dates: start: 2003
  11. PRILOSEC [Suspect]
     Active Substance: OMEPRAZOLE MAGNESIUM
     Route: 048
     Dates: start: 2003
  12. DEXILANT [Suspect]
     Active Substance: DEXLANSOPRAZOLE
     Route: 065
     Dates: start: 2003
  13. LASIX [Concomitant]
     Active Substance: FUROSEMIDE
     Dates: start: 20131112
  14. PRAVASTATIN. [Concomitant]
     Active Substance: PRAVASTATIN
     Dates: start: 20131112
  15. FLUCONAZOLE. [Concomitant]
     Active Substance: FLUCONAZOLE
     Dates: start: 20110126
  16. PREVACID [Suspect]
     Active Substance: LANSOPRAZOLE
     Route: 065
     Dates: start: 2003
  17. PREVACID 24 HR [Suspect]
     Active Substance: LANSOPRAZOLE
     Route: 065
     Dates: start: 2003
  18. AMLODIPINE BESYLATE. [Concomitant]
     Active Substance: AMLODIPINE BESYLATE
     Dates: start: 20110401
  19. AMOXICILLIN. [Concomitant]
     Active Substance: AMOXICILLIN
     Dates: start: 20110315
  20. HYDROXYZINE HCL [Concomitant]
     Active Substance: HYDROXYZINE HYDROCHLORIDE
     Dates: start: 20110322
  21. NEXIUM [Suspect]
     Active Substance: ESOMEPRAZOLE MAGNESIUM
     Indication: GASTROOESOPHAGEAL REFLUX DISEASE
     Dosage: DR CAPSULE
     Route: 048
     Dates: start: 20110301
  22. ECONAZOLE NITRATE. [Concomitant]
     Active Substance: ECONAZOLE NITRATE
     Dates: start: 20110322
  23. NEXIUM [Suspect]
     Active Substance: ESOMEPRAZOLE MAGNESIUM
     Indication: GASTROOESOPHAGEAL REFLUX DISEASE
     Route: 048
     Dates: start: 2003
  24. CRESTOR [Concomitant]
     Active Substance: ROSUVASTATIN CALCIUM
     Dates: start: 20110207
  25. GLYBURIDE-METFORMIN [Concomitant]
     Dates: start: 20110301
  26. PRILOSEC [Suspect]
     Active Substance: OMEPRAZOLE MAGNESIUM
     Dosage: GENERIC
     Route: 065
     Dates: start: 20131112
  27. SPIRONOLACTONE. [Concomitant]
     Active Substance: SPIRONOLACTONE
     Dates: start: 20131112
  28. LYRICA [Concomitant]
     Active Substance: PREGABALIN
     Dates: start: 20131112
  29. POTASSIUM [Concomitant]
     Active Substance: POTASSIUM
     Dates: start: 20110207

REACTIONS (3)
  - Renal injury [Unknown]
  - Chronic kidney disease [Unknown]
  - Acute kidney injury [Unknown]

NARRATIVE: CASE EVENT DATE: 20140121
